FAERS Safety Report 4332939-X (Version None)
Quarter: 2004Q2

REPORT INFORMATION
  Report Type: 
  Country: None (occurrence: None)
  Receive Date: 20040405
  Receipt Date: 20040405
  Transmission Date: 20050107
  Serious: Yes (Other)
  Sender: FDA-Public Use
  Company Number: None

PATIENT
  Sex: Female

DRUGS (4)
  1. ABILIFY [Suspect]
     Indication: BIPOLAR I DISORDER
     Dosage: 15 MG PO  Q HS
     Route: 048
     Dates: start: 20040311, end: 20040328
  2. NEURONTIN [Concomitant]
  3. ESKALITH [Concomitant]
  4. ENALAPRIL MALEATE [Concomitant]

REACTIONS (3)
  - AKATHISIA [None]
  - IMPAIRED DRIVING ABILITY [None]
  - SUICIDAL IDEATION [None]
